FAERS Safety Report 4975091-X (Version None)
Quarter: 2006Q2

REPORT INFORMATION
  Report Type: 
  Country: None (occurrence: None)
  Receive Date: 20060418
  Receipt Date: 20060406
  Transmission Date: 20061013
  Serious: Yes (Other)
  Sender: FDA-Public Use
  Company Number: DE-AMGEN-UK172649

PATIENT
  Age: 20 Year
  Sex: Female

DRUGS (2)
  1. NEULASTA [Suspect]
     Indication: NEUTROPENIA
     Route: 065
  2. ORAL ANTICOAGULANT NOS [Concomitant]
     Route: 048

REACTIONS (2)
  - LEUKOCYTOSIS [None]
  - PAIN [None]
